FAERS Safety Report 8613457-7 (Version None)
Quarter: 2012Q3

REPORT INFORMATION
  Report Type: 
  Country: None (occurrence: None)
  Receive Date: 20120822
  Receipt Date: 20120807
  Transmission Date: 20120928
  Serious: Yes (Death, Hospitalization, Other)
  Sender: FDA-Public Use
  Company Number: FR-009507513-1208FRA004386

PATIENT

DRUGS (11)
  1. CRESTOR [Concomitant]
  2. ISENTRESS [Suspect]
     Indication: HIV INFECTION
     Dosage: 400 MG, BID
     Route: 048
     Dates: start: 20110527, end: 20110601
  3. INTELENCE [Suspect]
     Dosage: 200 MG, BID
     Route: 048
  4. OMEPRAZOLE [Concomitant]
  5. NORVIR [Suspect]
     Dosage: UNK
     Route: 048
     Dates: end: 20110601
  6. [COMPOSITION UNSPECIFIED] [Concomitant]
  7. VIDEX [Suspect]
     Dosage: UNK
     Route: 048
     Dates: end: 20110527
  8. ASPIRIN [Concomitant]
  9. VIREAD [Suspect]
     Indication: HIV INFECTION
     Dosage: UNK
     Route: 048
     Dates: end: 20110527
  10. PREZISTA [Suspect]
     Dosage: 400 MG, BID
     Route: 048
     Dates: end: 20110601
  11. CLOMIPRAMINE HYDROCHLORIDE [Concomitant]

REACTIONS (4)
  - FANCONI SYNDROME [None]
  - RENAL FAILURE ACUTE [None]
  - METABOLIC ACIDOSIS [None]
  - MULTI-ORGAN FAILURE [None]
